FAERS Safety Report 11979451 (Version 1)
Quarter: 2016Q1

REPORT INFORMATION
  Report Type: Report from Study
  Country: US (occurrence: US)
  Receive Date: 20160129
  Receipt Date: 20160129
  Transmission Date: 20160526
  Serious: No
  Sender: FDA-Public Use
  Company Number: US-ABBVIE-15K-163-1412518-00

PATIENT
  Age: 50 Year
  Sex: Male

DRUGS (2)
  1. ZAPONEX [Concomitant]
     Active Substance: CLOZAPINE
     Indication: PRODUCT USED FOR UNKNOWN INDICATION
  2. HUMIRA [Suspect]
     Active Substance: ADALIMUMAB
     Indication: ANKYLOSING SPONDYLITIS
     Route: 065
     Dates: start: 20150428

REACTIONS (2)
  - Disturbance in attention [Not Recovered/Not Resolved]
  - Amnesia [Not Recovered/Not Resolved]

NARRATIVE: CASE EVENT DATE: 201505
